FAERS Safety Report 4454395-3 (Version None)
Quarter: 2004Q3

REPORT INFORMATION
  Report Type: 
  Country: None (occurrence: None)
  Receive Date: 20040921
  Receipt Date: 20040909
  Transmission Date: 20050211
  Serious: Yes (Hospitalization)
  Sender: FDA-Public Use
  Company Number: GB-JNJFOC-20040902866

PATIENT
  Sex: Male

DRUGS (12)
  1. REMICADE [Suspect]
     Indication: RHEUMATOID ARTHRITIS
     Route: 042
  2. PANTOPRAZOLE [Concomitant]
     Route: 065
  3. ASPIRIN [Concomitant]
     Route: 065
  4. ATENOLOL [Concomitant]
     Route: 065
  5. CO-AMILOFRUSE [Concomitant]
     Route: 065
  6. CO-AMILOFRUSE [Concomitant]
     Route: 065
  7. ATORVASTATIN CALCIUM [Concomitant]
     Route: 065
  8. FLUOXETINE [Concomitant]
     Route: 065
  9. DIAZEPAM [Concomitant]
     Route: 065
  10. VIOXX [Concomitant]
     Route: 065
  11. METHOTREXATE [Concomitant]
     Route: 065
  12. RAMIPRIL [Concomitant]
     Route: 065

REACTIONS (1)
  - PANCREATIC CARCINOMA [None]
